FAERS Safety Report 8351994-3 (Version None)
Quarter: 2012Q2

REPORT INFORMATION
  Report Type: 
  Country: None (occurrence: None)
  Receive Date: 20120509
  Receipt Date: 20120502
  Transmission Date: 20120825
  Serious: Yes (Hospitalization, Other)
  Sender: FDA-Public Use
  Company Number: 2012000107

PATIENT
  Age: 75 Year
  Sex: Male

DRUGS (10)
  1. CRESTOR [Concomitant]
  2. ALLOPURINOL [Concomitant]
  3. CALCITRIOL [Concomitant]
  4. LERCANIDIPINE [Concomitant]
  5. ACEON [Suspect]
     Indication: PRODUCT USED FOR UNKNOWN INDICATION
     Dosage: 2 MG, QD, ORAL 4 MG, QD, ORAL
     Route: 048
     Dates: start: 20111128, end: 20120401
  6. ACEON [Suspect]
     Indication: PRODUCT USED FOR UNKNOWN INDICATION
     Dosage: 2 MG, QD, ORAL 4 MG, QD, ORAL
     Route: 048
     Dates: start: 20120401, end: 20120418
  7. SODIUM BICARBONATE [Concomitant]
  8. FUROSEMIDE [Concomitant]
  9. ROCALTROL [Concomitant]
  10. DIAMICRON (GLICLAZIDE) [Concomitant]

REACTIONS (9)
  - HYPERKALAEMIA [None]
  - C-REACTIVE PROTEIN INCREASED [None]
  - HYPOTONIA [None]
  - SALIVARY HYPERSECRETION [None]
  - DYSARTHRIA [None]
  - HAEMOGLOBIN DECREASED [None]
  - WHITE BLOOD CELL COUNT INCREASED [None]
  - ANGIOEDEMA [None]
  - DYSPNOEA [None]
